FAERS Safety Report 13007071 (Version 2)
Quarter: 2017Q1

REPORT INFORMATION
  Report Type: Spontaneous
  Country: JP (occurrence: JP)
  Receive Date: 20161207
  Receipt Date: 20170116
  Transmission Date: 20170428
  Serious: Yes (Other)
  Sender: FDA-Public Use
  Company Number: JP-JNJFOC-20161206090

PATIENT
  Age: 48 Year
  Sex: Female
  Weight: 50 kg

DRUGS (8)
  1. MUCOSTA [Concomitant]
     Active Substance: REBAMIPIDE
     Route: 065
     Dates: start: 20160401
  2. TRAMAL OD [Suspect]
     Active Substance: TRAMADOL
     Indication: BACK PAIN
     Dosage: CUMULATIVE DOSE: 1600 MG
     Route: 048
     Dates: start: 20160531, end: 20160607
  3. METHYLCOBAL [Concomitant]
     Active Substance: METHYLCOBALAMIN
     Route: 065
     Dates: start: 20160401
  4. ALLEGRA [Concomitant]
     Active Substance: FEXOFENADINE HYDROCHLORIDE
     Route: 065
  5. LOXONIN [Suspect]
     Active Substance: LOXOPROFEN SODIUM
     Indication: BACK PAIN
     Route: 048
     Dates: start: 20160401
  6. ATARAX [Concomitant]
     Active Substance: HYDROXYZINE HYDROCHLORIDE
     Route: 065
  7. BRONUCK [Concomitant]
     Active Substance: BROMFENAC SODIUM
     Route: 065
     Dates: start: 20160714, end: 20160731
  8. LYRICA [Suspect]
     Active Substance: PREGABALIN
     Indication: BACK PAIN
     Route: 048
     Dates: start: 20160401

REACTIONS (1)
  - Renal impairment [Recovered/Resolved]

NARRATIVE: CASE EVENT DATE: 20160907
